FAERS Safety Report 13418710 (Version 1)
Quarter: 2017Q2

REPORT INFORMATION
  Report Type: Spontaneous
  Country: NL (occurrence: NL)
  Receive Date: 20170406
  Receipt Date: 20170406
  Transmission Date: 20170830
  Serious: Yes (Death)
  Sender: FDA-Public Use
  Company Number: NL-IMPAX LABORATORIES, INC-2017-IPXL-00818

PATIENT
  Age: 73 Year
  Sex: Male

DRUGS (1)
  1. DIGOXIN. [Suspect]
     Active Substance: DIGOXIN
     Indication: PRODUCT USED FOR UNKNOWN INDICATION
     Dosage: 20 MG, UNK
     Route: 048

REACTIONS (2)
  - Ventricular fibrillation [Fatal]
  - Toxicity to various agents [Fatal]
